FAERS Safety Report 5715661-4 (Version None)
Quarter: 2008Q2

REPORT INFORMATION
  Report Type: 
  Country: None (occurrence: None)
  Receive Date: 20080423
  Receipt Date: 20080423
  Transmission Date: 20081010
  Serious: Yes (Other)
  Sender: FDA-Public Use
  Company Number: None

PATIENT
  Sex: Female
  Weight: 71.6683 kg

DRUGS (2)
  1. SINGULAIR [Suspect]
     Indication: ASTHMA
     Dosage: 1 PILL ONCE A DAY PO
     Route: 048
     Dates: start: 20000110, end: 20080326
  2. SINGULAIR [Suspect]
     Indication: HYPERSENSITIVITY
     Dosage: 1 PILL ONCE A DAY PO
     Route: 048
     Dates: start: 20000110, end: 20080326

REACTIONS (4)
  - ANXIETY [None]
  - DEPRESSION [None]
  - MOOD ALTERED [None]
  - STRESS [None]
